FAERS Safety Report 17521001 (Version 3)
Quarter: 2020Q2

REPORT INFORMATION
  Report Type: Spontaneous
  Country: US (occurrence: US)
  Receive Date: 20200310
  Receipt Date: 20200519
  Transmission Date: 20200713
  Serious: Yes (Life-Threatening, Hospitalization, Other)
  Sender: FDA-Public Use
  Company Number: US-009507513-2003USA001851

PATIENT
  Age: 79 Year
  Sex: Male
  Weight: 72.38 kg

DRUGS (12)
  1. ADVAIR HFA [Concomitant]
     Active Substance: FLUTICASONE PROPIONATE\SALMETEROL XINAFOATE
     Indication: CHRONIC OBSTRUCTIVE PULMONARY DISEASE
     Dosage: 250-50 MCG/DOSE INHALER,  1 PUFF AS DIRECTED EVERY 12H
  2. MUCINEX [Concomitant]
     Active Substance: GUAIFENESIN
     Indication: CHRONIC OBSTRUCTIVE PULMONARY DISEASE
     Dosage: 600 MILLIGRAM, TWO TIMES DAILY
     Route: 048
  3. KEYTRUDA [Suspect]
     Active Substance: PEMBROLIZUMAB
     Indication: LUNG NEOPLASM MALIGNANT
     Dosage: 200 MILLIGRAM EVERY 3 WEEKS
     Route: 042
     Dates: start: 20200212, end: 20200212
  4. VENTOLIN HFA [Concomitant]
     Active Substance: ALBUTEROL SULFATE
     Indication: CHRONIC OBSTRUCTIVE PULMONARY DISEASE
     Dosage: 90 MCG/ACTUATION INHALER, 1-2 PUFFS AS DIRECTED AS NEEDED FOR WHEEZING
  5. ZOFRAN [Concomitant]
     Active Substance: ONDANSETRON HYDROCHLORIDE
     Dosage: 8 MILLIGRAM, EVERY 8 HOURS, AS NEEDED
  6. KEYTRUDA [Suspect]
     Active Substance: PEMBROLIZUMAB
     Indication: NON-SMALL CELL LUNG CANCER
  7. PARAPLATIN [Concomitant]
     Active Substance: CARBOPLATIN
     Dosage: 488 MILLIGRAM
  8. SODIUM CHLORIDE. [Concomitant]
     Active Substance: SODIUM CHLORIDE
     Indication: FLUID REPLACEMENT
     Dosage: 100 MILLILITER
     Dates: start: 20200212
  9. IMODIUM [Concomitant]
     Active Substance: LOPERAMIDE HYDROCHLORIDE
     Indication: DIARRHOEA
     Dosage: 2 MILLIGRAM, FOUR TIMES DAILY AS NEEDED
     Route: 048
  10. SPIRIVA [Concomitant]
     Active Substance: TIOTROPIUM BROMIDE MONOHYDRATE
     Indication: CHRONIC OBSTRUCTIVE PULMONARY DISEASE
     Dosage: 18 MICROGRAM, QD
  11. ABRAXANE [Concomitant]
     Active Substance: PACLITAXEL
     Dosage: 146 MILLIGRAM
  12. CARDIZEM [Concomitant]
     Active Substance: DILTIAZEM HYDROCHLORIDE
     Indication: ATRIAL FIBRILLATION
     Dosage: 30 MILLIGRAM, (1 TABLET), TWO TIMES DAILY
     Route: 048

REACTIONS (6)
  - Hypersensitivity [Unknown]
  - Chills [Recovered/Resolved]
  - Back pain [Recovered/Resolved]
  - Troponin increased [Recovered/Resolved]
  - Adverse drug reaction [Recovered/Resolved]
  - Anaphylactic reaction [Recovered/Resolved]

NARRATIVE: CASE EVENT DATE: 20200212
